FAERS Safety Report 6496690-2 (Version None)
Quarter: 2009Q4

REPORT INFORMATION
  Report Type: 
  Country: None (occurrence: None)
  Receive Date: 20091210
  Receipt Date: 20091125
  Transmission Date: 20100525
  Serious: Yes (Disabling, Other)
  Sender: FDA-Public Use
  Company Number: 08-AUR-02658

PATIENT
  Age: 82 Year
  Sex: Male

DRUGS (1)
  1. CITALOPRAM HYDROBROMIDE [Suspect]
     Indication: DEPRESSION
     Dosage: 10MG, DAILY
     Dates: start: 20060808, end: 20060911

REACTIONS (4)
  - FACIAL PARESIS [None]
  - HALLUCINATION [None]
  - OEDEMA MOUTH [None]
  - TREMOR [None]
